FAERS Safety Report 12191603 (Version 1)
Quarter: 2016Q1

REPORT INFORMATION
  Report Type: Spontaneous
  Country: US (occurrence: US)
  Receive Date: 20160318
  Receipt Date: 20160318
  Transmission Date: 20160526
  Serious: Yes (Other)
  Sender: FDA-Public Use
  Company Number: US-BAXALTA-2016BLT001535

PATIENT
  Age: 30 Year
  Sex: Female
  Weight: 52.27 kg

DRUGS (3)
  1. BENADRYL                           /00945501/ [Concomitant]
     Indication: PREMEDICATION
     Dosage: 1 DOSAGE FORMS, UNK, 30 MINUTES PRIOR TO INFUSION
     Route: 048
  2. HYQVIA [Suspect]
     Active Substance: HUMAN IMMUNOGLOBULIN G\HYALURONIDASE RECOMBINANT HUMAN
     Indication: IMMUNODEFICIENCY COMMON VARIABLE
     Dosage: UNK UNK, EVERY 3 WK
     Route: 058
     Dates: start: 201508
  3. TYLENOL [Concomitant]
     Active Substance: ACETAMINOPHEN
     Indication: PREMEDICATION
     Dosage: 1 DOSAGE FORMS, UNK, 30 MINUTES PRIOR TO INFUSION
     Route: 048

REACTIONS (1)
  - Neuropathy peripheral [Not Recovered/Not Resolved]

NARRATIVE: CASE EVENT DATE: 201512
